FAERS Safety Report 14935930 (Version 3)
Quarter: 2018Q2

REPORT INFORMATION
  Report Type: Report from Study
  Country: JP (occurrence: JP)
  Receive Date: 20180524
  Receipt Date: 20180626
  Transmission Date: 20180711
  Serious: Yes (Other)
  Sender: FDA-Public Use
  Company Number: JP-GLAXOSMITHKLINE-JP2018JPN089931

PATIENT
  Age: 19 Year
  Sex: Female

DRUGS (12)
  1. BAKTAR [Concomitant]
     Active Substance: SULFAMETHOXAZOLE\TRIMETHOPRIM
     Dosage: UNK
  2. LUNESTA [Concomitant]
     Active Substance: ESZOPICLONE
     Dosage: UNK
  3. MEILAX [Concomitant]
     Active Substance: ETHYL LOFLAZEPATE
     Dosage: UNK
  4. REMERON [Concomitant]
     Active Substance: MIRTAZAPINE
     Dosage: UNK
  5. MYSLEE [Concomitant]
     Active Substance: ZOLPIDEM TARTRATE
     Dosage: UNK
  6. NAUZELIN [Concomitant]
     Active Substance: DOMPERIDONE
     Dosage: UNK
  7. PREDNISOLONE. [Concomitant]
     Active Substance: PREDNISOLONE
     Dosage: 19 MG, 1D
  8. MAGNESIUM OXIDE. [Concomitant]
     Active Substance: MAGNESIUM OXIDE
     Dosage: UNK
  9. SEROQUEL [Concomitant]
     Active Substance: QUETIAPINE FUMARATE
     Dosage: UNK
  10. NEXIUM [Concomitant]
     Active Substance: ESOMEPRAZOLE MAGNESIUM
     Dosage: UNK
  11. BELIMUMAB SUBCUTANEOUS [Suspect]
     Active Substance: BELIMUMAB
     Indication: SYSTEMIC LUPUS ERYTHEMATOSUS
     Dosage: 200 MG, 1D
     Route: 058
     Dates: start: 20180423
  12. CALONAL [Concomitant]
     Active Substance: ACETAMINOPHEN
     Dosage: UNK, PRN

REACTIONS (2)
  - Haemorrhage subcutaneous [Recovered/Resolved]
  - Pain [Recovered/Resolved]

NARRATIVE: CASE EVENT DATE: 201805
